FAERS Safety Report 6712170-0 (Version None)
Quarter: 2010Q2

REPORT INFORMATION
  Report Type: 
  Country: None (occurrence: None)
  Receive Date: 20100505
  Receipt Date: 20100423
  Transmission Date: 20101027
  Serious: Yes (Other)
  Sender: FDA-Public Use
  Company Number: CN-PFIZER INC-2010051349

PATIENT
  Sex: Male

DRUGS (2)
  1. CHAMPIX [Suspect]
     Indication: SMOKING CESSATION THERAPY
     Dosage: UNK
     Route: 048
     Dates: start: 20100422
  2. AMINOPHYLLINE [Concomitant]

REACTIONS (4)
  - CHEST DISCOMFORT [None]
  - HAEMOPTYSIS [None]
  - INSOMNIA [None]
  - PRODUCTIVE COUGH [None]
